FAERS Safety Report 4682727-X (Version None)
Quarter: 2005Q2

REPORT INFORMATION
  Report Type: 
  Country: None (occurrence: None)
  Receive Date: 20050602
  Receipt Date: 20050418
  Transmission Date: 20051028
  Serious: No
  Sender: FDA-Public Use
  Company Number: USA050495947

PATIENT
  Sex: Female

DRUGS (3)
  1. CYMBALTA [Suspect]
     Indication: DEPRESSION
     Dosage: 30 MG IN THE EVENING
     Dates: start: 20050415
  2. HYDROCODONE BITARTRATE [Concomitant]
  3. BACLOFEN [Concomitant]

REACTIONS (8)
  - BRUXISM [None]
  - INSOMNIA [None]
  - IRRITABILITY [None]
  - LIP BLISTER [None]
  - NAUSEA [None]
  - NERVOUSNESS [None]
  - ORAL MUCOSAL BLISTERING [None]
  - PRURITUS [None]
